FAERS Safety Report 23137575 (Version 1)
Quarter: 2023Q4

REPORT INFORMATION
  Report Type: Spontaneous
  Country: None (occurrence: US)
  Receive Date: 20231102
  Receipt Date: 20231102
  Transmission Date: 20240110
  Serious: No
  Sender: FDA-Public Use
  Company Number: US-Oxford Pharmaceuticals, LLC-2147733

PATIENT

DRUGS (1)
  1. SPIRONOLACTONE [Suspect]
     Active Substance: SPIRONOLACTONE
     Indication: Product used for unknown indication

REACTIONS (5)
  - Gastrooesophageal reflux disease [Recovered/Resolved]
  - Drug intolerance [Unknown]
  - Product odour abnormal [Unknown]
  - Product substitution issue [Unknown]
  - Product formulation issue [Unknown]
